FAERS Safety Report 6664439-6 (Version None)
Quarter: 2010Q2

REPORT INFORMATION
  Report Type: 
  Country: None (occurrence: None)
  Receive Date: 20100401
  Receipt Date: 20100330
  Transmission Date: 20101027
  Serious: Yes (Life-Threatening, Hospitalization, Other)
  Sender: FDA-Public Use
  Company Number: PHHO2010AU04958

PATIENT
  Sex: Male
  Weight: 60.9 kg

DRUGS (9)
  1. TASIGNA [Suspect]
     Indication: CHRONIC MYELOID LEUKAEMIA
     Dosage: 600 MG, UNK
     Route: 048
     Dates: start: 20100322
  2. CANDESARTAN W/HYDROCHLOROTHIAZIDE [Concomitant]
     Indication: HYPERTENSION
  3. CANDESARTAN [Concomitant]
     Indication: HYPERTENSION
     Dosage: UNK
     Dates: end: 20100325
  4. PRAVASTATIN [Concomitant]
     Indication: HYPERCHOLESTEROLAEMIA
     Dosage: UNK
     Dates: end: 20100325
  5. METFORMIN (GLUCOPHAGE) [Concomitant]
     Indication: TYPE 2 DIABETES MELLITUS
  6. GLICLAZIDE [Concomitant]
     Indication: TYPE 2 DIABETES MELLITUS
  7. FELODIPINE [Concomitant]
     Indication: HYPERTENSION
  8. ROSIGLITAZONE [Concomitant]
     Indication: TYPE 2 DIABETES MELLITUS
  9. CLOPIDOGREL BISULFATE [Concomitant]
     Indication: MYOCARDIAL ISCHAEMIA

REACTIONS (5)
  - CHEST PAIN [None]
  - HAEMOGLOBIN DECREASED [None]
  - MYOCARDIAL INFARCTION [None]
  - MYOCARDIAL ISCHAEMIA [None]
  - VOMITING [None]
